FAERS Safety Report 11745099 (Version 20)
Quarter: 2020Q2

REPORT INFORMATION
  Report Type: Spontaneous
  Country: US (occurrence: US)
  Receive Date: 20151117
  Receipt Date: 20200515
  Transmission Date: 20200713
  Serious: Yes (Other)
  Sender: FDA-Public Use
  Company Number: PHEH2015US023697

PATIENT
  Sex: Female
  Weight: 75.29 kg

DRUGS (3)
  1. ONDANSETRON HYDROCHLORIDE. [Suspect]
     Active Substance: ONDANSETRON HYDROCHLORIDE
     Indication: MORNING SICKNESS
     Dosage: 1 DF, Q6H
     Route: 048
     Dates: start: 20121026, end: 20121221
  2. ZOFRAN [Suspect]
     Active Substance: ONDANSETRON HYDROCHLORIDE
     Indication: MORNING SICKNESS
     Route: 048
  3. ONDANSETRON HYDROCHLORIDE. [Suspect]
     Active Substance: ONDANSETRON HYDROCHLORIDE
     Dosage: 1 DF, Q6H
     Route: 048
     Dates: start: 20130501, end: 20130530

REACTIONS (16)
  - Uterine contractions during pregnancy [Unknown]
  - Constipation [Unknown]
  - Viral infection [Unknown]
  - Gestational diabetes [Unknown]
  - Appendicitis [Unknown]
  - Pain [Unknown]
  - Anxiety [Unknown]
  - Emotional distress [Unknown]
  - Injury [Unknown]
  - Haematuria [Unknown]
  - Product use in unapproved indication [Unknown]
  - Maternal exposure during pregnancy [Unknown]
  - Urinary tract infection [Unknown]
  - Pyelonephritis acute [Unknown]
  - Pharyngitis [Unknown]
  - Back pain [Unknown]
